FAERS Safety Report 9413758 (Version 2)
Quarter: 2013Q3

REPORT INFORMATION
  Report Type: Spontaneous
  Country: JP (occurrence: JP)
  Receive Date: 20130722
  Receipt Date: 20130808
  Transmission Date: 20140515
  Serious: Yes (Hospitalization)
  Sender: FDA-Public Use
  Company Number: JP-ASTRAZENECA-2013SE54697

PATIENT
  Age: 67 Year
  Sex: Male

DRUGS (11)
  1. SEROQUEL [Suspect]
     Route: 048
     Dates: start: 20130428
  2. GRAMALIL [Suspect]
     Route: 048
     Dates: start: 20130522, end: 20130529
  3. GRAMALIL [Suspect]
     Route: 048
     Dates: start: 20130530, end: 20130605
  4. GRAMALIL [Suspect]
     Route: 048
     Dates: start: 20130606, end: 20130613
  5. GRAMALIL [Suspect]
     Route: 048
     Dates: start: 20130614, end: 20130628
  6. DEPAKENE-R [Concomitant]
     Dates: start: 20130528
  7. MAGMITT [Concomitant]
     Dates: start: 20130422
  8. GASMOTIN [Concomitant]
     Route: 048
     Dates: start: 20130422
  9. DIOVAN [Concomitant]
     Dates: start: 20130422
  10. TAKEPRON [Concomitant]
     Dates: start: 20130422
  11. LENDORMIN [Concomitant]
     Dates: start: 20130422

REACTIONS (4)
  - Extrapyramidal disorder [Recovered/Resolved]
  - Pyrexia [Recovered/Resolved]
  - Dysphagia [Recovered/Resolved]
  - Altered state of consciousness [Recovered/Resolved]
